FAERS Safety Report 12793122 (Version 1)
Quarter: 2016Q3

REPORT INFORMATION
  Report Type: Spontaneous
  Country: US (occurrence: US)
  Receive Date: 20160929
  Receipt Date: 20160929
  Transmission Date: 20161109
  Serious: Yes (Death)
  Sender: FDA-Public Use
  Company Number: None

PATIENT
  Age: 58 Year
  Sex: Female
  Weight: 50.85 kg

DRUGS (4)
  1. PROBIOTIC [Concomitant]
     Active Substance: PROBIOTICS NOS
  2. LIALDA [Concomitant]
     Active Substance: MESALAMINE
  3. VAGIFEM [Concomitant]
     Active Substance: ESTRADIOL
  4. HYOSCYAMINE. [Suspect]
     Active Substance: HYOSCYAMINE
     Indication: COLITIS
     Route: 060
     Dates: start: 20160706, end: 20160719

REACTIONS (4)
  - Colitis [None]
  - Dizziness [None]
  - Fall [None]
  - Eye movement disorder [None]

NARRATIVE: CASE EVENT DATE: 20160718
